FAERS Safety Report 9653189 (Version 2)
Quarter: 2014Q3

REPORT INFORMATION
  Report Type: Spontaneous
  Country: US (occurrence: US)
  Receive Date: 20131029
  Receipt Date: 20140709
  Transmission Date: 20150326
  Serious: Yes (Hospitalization)
  Sender: FDA-Public Use
  Company Number: US-GLAXOSMITHKLINE-A1047344A

PATIENT
  Age: 60 Year
  Sex: Male

DRUGS (2)
  1. UNSPECIFIED MEDICATIONS [Concomitant]
     Active Substance: UNSPECIFIED INGREDIENT
  2. POTIGA [Suspect]
     Active Substance: EZOGABINE
     Indication: CONVULSION
     Dosage: 300MG UNKNOWN
     Dates: start: 20130801

REACTIONS (3)
  - Brain operation [Unknown]
  - Amnesia [Unknown]
  - Generalised tonic-clonic seizure [Unknown]

NARRATIVE: CASE EVENT DATE: 201406
